FAERS Safety Report 21481614 (Version 1)
Quarter: 2022Q4

REPORT INFORMATION
  Report Type: Spontaneous
  Country: CN (occurrence: CN)
  Receive Date: 20221020
  Receipt Date: 20221020
  Transmission Date: 20230113
  Serious: Yes (Death, Hospitalization, Other)
  Sender: FDA-Public Use
  Company Number: CN-CELGENE-CHN-20200207633

PATIENT
  Age: 70 Year
  Sex: Male
  Weight: 65 kg

DRUGS (11)
  1. ABRAXANE [Suspect]
     Active Substance: PACLITAXEL
     Indication: Lung squamous cell carcinoma metastatic
     Dosage: 100 MILLIGRAM/SQ. METER
     Route: 042
     Dates: start: 20190927, end: 20200115
  2. CARBOPLATIN [Suspect]
     Active Substance: CARBOPLATIN
     Indication: Lung squamous cell carcinoma metastatic
     Dosage: AUC=5
     Route: 042
     Dates: start: 20190927, end: 20200108
  3. SERPLULIMAB [Suspect]
     Active Substance: SERPLULIMAB
     Indication: Lung squamous cell carcinoma metastatic
     Dosage: 4.5 MILLIGRAM/KILOGRAM
     Route: 042
     Dates: start: 20190927
  4. SERPLULIMAB [Suspect]
     Active Substance: SERPLULIMAB
     Dosage: 4.5 MILLIGRAM/KILOGRAM
     Route: 042
     Dates: start: 20200204, end: 20200204
  5. THEOPHYLLINE [Concomitant]
     Active Substance: THEOPHYLLINE
     Indication: Wheezing
     Dosage: .1 GRAM
     Route: 048
     Dates: start: 20200203, end: 20200206
  6. ACETYLCYSTEINE [Concomitant]
     Active Substance: ACETYLCYSTEINE
     Indication: Prophylaxis
     Dosage: 1.2 GRAM
     Route: 048
     Dates: start: 20200203, end: 20200206
  7. EUCALYPTUS OIL [Concomitant]
     Active Substance: EUCALYPTUS OIL
     Indication: Productive cough
     Dosage: .9 GRAM
     Route: 048
     Dates: start: 20200203, end: 20200206
  8. BROMHEXINE HYDROCHLORIDE [Concomitant]
     Active Substance: BROMHEXINE HYDROCHLORIDE
     Indication: Prophylaxis
     Dosage: 4 MILLIGRAM
     Route: 041
     Dates: start: 20200203, end: 20200206
  9. CARBAZ [Concomitant]
     Indication: Haemorrhage prophylaxis
     Dosage: 80 MILLIGRAM
     Route: 041
     Dates: start: 20200203, end: 20200206
  10. MEGESTROL ACETATE [Concomitant]
     Active Substance: MEGESTROL ACETATE
     Indication: Decreased appetite
     Dosage: 240 MILLIGRAM
     Route: 048
     Dates: start: 20200203, end: 20200206
  11. POLYETHYLENE GLYCOL [Concomitant]
     Active Substance: POLYETHYLENE GLYCOL
     Indication: Constipation prophylaxis
     Dosage: 41.1 GRAM
     Route: 042
     Dates: start: 20200204, end: 20200206

REACTIONS (1)
  - Pneumonia [Fatal]

NARRATIVE: CASE EVENT DATE: 20200209
